FAERS Safety Report 8013993-0 (Version None)
Quarter: 2011Q4

REPORT INFORMATION
  Report Type: 
  Country: None (occurrence: None)
  Receive Date: 20111229
  Receipt Date: 20111219
  Transmission Date: 20120403
  Serious: Yes (Other)
  Sender: FDA-Public Use
  Company Number: DE-GENZYME-CLOF-1001969

PATIENT

DRUGS (10)
  1. THYMOGLOBULIN [Suspect]
     Indication: BONE MARROW CONDITIONING REGIMEN
     Route: 065
  2. CYCLOPHOSPHAMIDE [Concomitant]
     Indication: BONE MARROW CONDITIONING REGIMEN
     Route: 065
  3. LEVOFLOXACIN [Concomitant]
     Indication: PROPHYLAXIS
     Route: 065
  4. ACYCLOVIR [Concomitant]
     Indication: PROPHYLAXIS
     Dosage: 5 MG/KG, QD
     Route: 065
  5. FLUCONAZOLE [Concomitant]
     Indication: PROPHYLAXIS
     Route: 065
  6. EVOLTRA [Suspect]
     Indication: ACUTE MYELOID LEUKAEMIA
     Dosage: 30 MG/M2, QD, 1 HOUR INFUSION
     Route: 042
  7. MYCOPHENOLATE MOFETIL [Concomitant]
     Indication: PROPHYLAXIS AGAINST GRAFT VERSUS HOST DISEASE
     Dosage: 10 MG/KG, TID
     Route: 065
  8. CYCLOSPORINE [Concomitant]
     Indication: PROPHYLAXIS AGAINST GRAFT VERSUS HOST DISEASE
     Route: 065
  9. METRONIDAZOLE [Concomitant]
     Indication: PROPHYLAXIS
     Route: 065
  10. CYTARABINE [Suspect]
     Indication: ACUTE MYELOID LEUKAEMIA
     Dosage: 1000 MG/M2, QD, 2 HOUR INFUSION
     Route: 042

REACTIONS (2)
  - MUCOSAL INFLAMMATION [None]
  - PYREXIA [None]
